FAERS Safety Report 7452503-3 (Version None)
Quarter: 2011Q2

REPORT INFORMATION
  Report Type: 
  Country: None (occurrence: None)
  Receive Date: 20110502
  Receipt Date: 20100907
  Transmission Date: 20111010
  Serious: No
  Sender: FDA-Public Use
  Company Number: US-ASTRAZENECA-2010SE42260

PATIENT
  Age: 59 Year
  Sex: Female
  Weight: 97.5 kg

DRUGS (5)
  1. TOPROL-XL [Concomitant]
     Route: 048
  2. UNIRETIC [Concomitant]
  3. CELEBREX [Concomitant]
  4. NEXIUM [Suspect]
     Indication: GASTROOESOPHAGEAL REFLUX DISEASE
     Route: 048
     Dates: start: 20010101
  5. SIMVASTATIN [Concomitant]

REACTIONS (2)
  - OSTEOARTHRITIS [None]
  - ARTHRITIS [None]
